FAERS Safety Report 13869049 (Version 3)
Quarter: 2017Q3

REPORT INFORMATION
  Report Type: Spontaneous
  Country: BR (occurrence: BR)
  Receive Date: 20170815
  Receipt Date: 20170911
  Transmission Date: 20171127
  Serious: Yes (Hospitalization)
  Sender: FDA-Public Use
  Company Number: PHHY2017BR117832

PATIENT
  Sex: Female
  Weight: 36 kg

DRUGS (12)
  1. SERETIDE [Concomitant]
     Active Substance: FLUTICASONE PROPIONATE\SALMETEROL XINAFOATE
     Indication: ASTHMA
     Dosage: 2 DF, QD (2 PULSES / DAY)
     Route: 055
  2. OMEPRAZOLE. [Concomitant]
     Active Substance: OMEPRAZOLE
     Indication: GASTRIC DISORDER
     Dosage: 1 DF, QD
     Route: 048
     Dates: start: 2015
  3. BUFEN [Concomitant]
     Indication: APTYALISM
     Dosage: 30 DRP, BID (30 DROPS / 2 TIMES A DAY)
     Route: 048
  4. BUFEN [Concomitant]
     Indication: ABDOMINAL PAIN UPPER
  5. VIGABATRIN. [Suspect]
     Active Substance: VIGABATRIN
     Indication: PRODUCT USED FOR UNKNOWN INDICATION
     Route: 065
  6. SIMETHICONE (DIMETHICONE) [Concomitant]
     Active Substance: DIMETHICONE
     Indication: FLATULENCE
     Dosage: 35 GTT, BID (35 DROPS / 2 TIMES A DAY)
     Route: 048
  7. TEGRETOL [Suspect]
     Active Substance: CARBAMAZEPINE
     Indication: SEIZURE
     Dosage: 17 ML, Q6H (17ML EVERY 6 HOURS)
     Route: 048
  8. DOMPERIDONE [Concomitant]
     Active Substance: DOMPERIDONE
     Indication: GASTRIC DISORDER
     Dosage: 10 ML, Q8H (10ML / EVERY 8 HOURS)
     Route: 048
  9. CEFALEXIN [Concomitant]
     Active Substance: CEPHALEXIN
     Indication: URINARY TRACT INFECTION
     Dosage: 10 ML, Q12H (10 ML / EVERY 12 HOURS)
     Route: 048
  10. LACTULONE [Concomitant]
     Indication: CONSTIPATION
     Dosage: 10 ML, BID (10ML / 2 TIMES A DAY)
     Route: 048
  11. CLOBAZAM [Suspect]
     Active Substance: CLOBAZAM
     Indication: PRODUCT USED FOR UNKNOWN INDICATION
     Route: 065
  12. FLUOXETINE [Concomitant]
     Active Substance: FLUOXETINE HYDROCHLORIDE
     Indication: DEPRESSION
     Dosage: 20 GTT, QD (20 DROPS / DAY)
     Route: 048
     Dates: start: 2014

REACTIONS (10)
  - Blood urine [Recovering/Resolving]
  - Seizure [Recovering/Resolving]
  - Pneumonia [Recovering/Resolving]
  - Loss of consciousness [Recovering/Resolving]
  - Crying [Recovering/Resolving]
  - Urinary tract infection [Recovering/Resolving]
  - Product quality issue [Unknown]
  - Muscle spasms [Recovering/Resolving]
  - Asthenia [Recovering/Resolving]
  - Sinusitis [Recovering/Resolving]
